FAERS Safety Report 18426712 (Version 1)
Quarter: 2020Q4

REPORT INFORMATION
  Report Type: Spontaneous
  Country: US (occurrence: US)
  Receive Date: 20201026
  Receipt Date: 20201026
  Transmission Date: 20210114
  Serious: Yes (Other)
  Sender: FDA-Public Use
  Company Number: None

PATIENT
  Age: 88 Year
  Sex: Female
  Weight: 49.9 kg

DRUGS (6)
  1. AMBIEN [Concomitant]
     Active Substance: ZOLPIDEM TARTRATE
  2. CELECOXIB. [Concomitant]
     Active Substance: CELECOXIB
  3. TYLENOL [Concomitant]
     Active Substance: ACETAMINOPHEN
  4. XANAX [Concomitant]
     Active Substance: ALPRAZOLAM
  5. ERLOTINIB [Suspect]
     Active Substance: ERLOTINIB
     Indication: LUNG NEOPLASM MALIGNANT
     Route: 048
     Dates: start: 20160721, end: 20201026
  6. PENTASA [Concomitant]
     Active Substance: MESALAMINE

REACTIONS (1)
  - Disease progression [None]

NARRATIVE: CASE EVENT DATE: 20201026
